FAERS Safety Report 12413207 (Version 2)
Quarter: 2016Q2

REPORT INFORMATION
  Report Type: Spontaneous
  Country: GR (occurrence: GR)
  Receive Date: 20160527
  Receipt Date: 20160530
  Transmission Date: 20160815
  Serious: Yes (Other)
  Sender: FDA-Public Use
  Company Number: PHHY2016GR070038

PATIENT

DRUGS (2)
  1. CICLOSPORIN [Suspect]
     Active Substance: CYCLOSPORINE
     Indication: PRODUCT USED FOR UNKNOWN INDICATION
     Route: 065
  2. COLCHICINE. [Concomitant]
     Active Substance: COLCHICINE
     Indication: PRODUCT USED FOR UNKNOWN INDICATION
     Dosage: 0.6 MG, TID
     Route: 065

REACTIONS (12)
  - Respiratory acidosis [Unknown]
  - Hypotension [Unknown]
  - Myalgia [Unknown]
  - Lethargy [Unknown]
  - Lactic acidosis [Unknown]
  - Metabolic acidosis [Unknown]
  - Hypoxia [Unknown]
  - Nausea [Unknown]
  - Hypovolaemia [Unknown]
  - Vomiting [Unknown]
  - Acidosis hyperchloraemic [Unknown]
  - Diarrhoea [Unknown]
